FAERS Safety Report 6924314-6 (Version None)
Quarter: 2010Q3

REPORT INFORMATION
  Report Type: 
  Country: None (occurrence: None)
  Receive Date: 20100811
  Receipt Date: 20100811
  Transmission Date: 20110219
  Serious: Yes (Other)
  Sender: FDA-Public Use
  Company Number: None

PATIENT
  Age: 63 Year
  Sex: Female
  Weight: 53.0709 kg

DRUGS (1)
  1. URSODIOL [Suspect]
     Indication: BILIARY CIRRHOSIS PRIMARY
     Dosage: 3X DAY
     Dates: start: 20091008, end: 20100124

REACTIONS (4)
  - DYSURIA [None]
  - EYE PRURITUS [None]
  - MOOD SWINGS [None]
  - PRURITUS GENERALISED [None]
